FAERS Safety Report 8921183 (Version 2)
Quarter: 2013Q1

REPORT INFORMATION
  Report Type: Spontaneous
  Country: AU (occurrence: AU)
  Receive Date: 20121122
  Receipt Date: 20130215
  Transmission Date: 20140127
  Serious: Yes (Hospitalization)
  Sender: FDA-Public Use
  Company Number: AU-009507513-1211AUS007663

PATIENT
  Age: 28 Year
  Sex: Female

DRUGS (3)
  1. PEG-INTRON [Suspect]
  2. RIBAVIRIN [Suspect]
  3. [THERAPY UNSPECIFIED] [Suspect]

REACTIONS (3)
  - Psychotic disorder [Unknown]
  - Neutrophil count decreased [Unknown]
  - Overdose [Unknown]
